FAERS Safety Report 5804116-4 (Version None)
Quarter: 2008Q3

REPORT INFORMATION
  Report Type: 
  Country: None (occurrence: None)
  Receive Date: 20080707
  Receipt Date: 20080703
  Transmission Date: 20090109
  Serious: No
  Sender: FDA-Public Use
  Company Number: SP01962

PATIENT
  Age: 45 Year
  Sex: Female

DRUGS (1)
  1. MOVIPREP [Suspect]
     Dosage: (1 LIT), ORAL
     Route: 048
     Dates: start: 20080611, end: 20080611

REACTIONS (6)
  - CYANOSIS [None]
  - FEELING COLD [None]
  - HEADACHE [None]
  - MYALGIA [None]
  - SYNCOPE [None]
  - VOMITING [None]
